FAERS Safety Report 9382617 (Version 1)
Quarter: 2013Q3

REPORT INFORMATION
  Report Type: Report from Study
  Country: US (occurrence: US)
  Receive Date: 20130703
  Receipt Date: 20130703
  Transmission Date: 20140515
  Serious: Yes (Hospitalization)
  Sender: FDA-Public Use
  Company Number: US-ACTELION-A-NJ2013-85372

PATIENT
  Age: 57 Year
  Sex: Female

DRUGS (2)
  1. VELETRI [Suspect]
     Indication: PULMONARY ARTERIAL HYPERTENSION
     Dosage: 10.5 NG/KG, PER MIN
     Route: 041
     Dates: start: 20120413
  2. TYLENOL [Suspect]

REACTIONS (4)
  - Hepatitis C [Unknown]
  - Overdose [Unknown]
  - Catheter site pain [Unknown]
  - Hypotension [Unknown]
